FAERS Safety Report 7254160-8 (Version None)
Quarter: 2011Q1

REPORT INFORMATION
  Report Type: 
  Country: None (occurrence: None)
  Receive Date: 20110129
  Receipt Date: 20100210
  Transmission Date: 20110831
  Serious: No
  Sender: FDA-Public Use
  Company Number: US-ABBOTT-10P-163-0626268-00

PATIENT
  Sex: Female
  Weight: 68.1 kg

DRUGS (13)
  1. ZANTAC [Concomitant]
     Indication: GASTROOESOPHAGEAL REFLUX DISEASE
  2. BUPROPION [Concomitant]
     Indication: DEPRESSION
  3. LEVOTHYROXINE SODIUM [Concomitant]
     Indication: BASEDOW'S DISEASE
  4. TRAZODONE HCL [Concomitant]
     Indication: INSOMNIA
  5. ESTROGENIC SUBSTANCE [Concomitant]
     Indication: HYSTERECTOMY
  6. BUPROPION [Concomitant]
     Indication: SMOKING CESSATION THERAPY
  7. PROTONIX [Concomitant]
     Indication: GASTROOESOPHAGEAL REFLUX DISEASE
  8. HUMIRA [Suspect]
     Dates: start: 20100209
  9. HYDROXYZINE [Concomitant]
     Indication: ANXIETY
  10. ALUMINUM HYDROXIDE [Concomitant]
     Indication: GASTROOESOPHAGEAL REFLUX DISEASE
  11. BUPROPION [Concomitant]
     Indication: ATTENTION DEFICIT/HYPERACTIVITY DISORDER
  12. HUMIRA [Suspect]
     Indication: PSORIASIS
     Dosage: ONCE
  13. VALPROIC ACID [Concomitant]
     Indication: AFFECTIVE DISORDER

REACTIONS (2)
  - DIARRHOEA [None]
  - FATIGUE [None]
